FAERS Safety Report 13966330 (Version 1)
Quarter: 2017Q3

REPORT INFORMATION
  Report Type: Spontaneous
  Country: US (occurrence: US)
  Receive Date: 20170913
  Receipt Date: 20170913
  Transmission Date: 20171128
  Serious: Yes (Other)
  Sender: FDA-Public Use
  Company Number: US-JAZZ-JPI-P-014693

PATIENT
  Sex: Female
  Weight: 136.36 kg

DRUGS (13)
  1. VITAMIN B COMPLEX WITH VITAMIN C + FOLIC ACID [Concomitant]
  2. GABAPENTIN. [Concomitant]
     Active Substance: GABAPENTIN
  3. DULOXETINE HYDROCHLORIDE. [Concomitant]
     Active Substance: DULOXETINE HYDROCHLORIDE
  4. MULTIVITAMIN                       /08159201/ [Concomitant]
  5. LIDOCAINE. [Concomitant]
     Active Substance: LIDOCAINE
  6. XYREM [Suspect]
     Active Substance: SODIUM OXYBATE
     Indication: NARCOLEPSY
     Dosage: UNK UNKNOWN, SINGLE
     Route: 048
     Dates: start: 200503
  7. XYREM [Suspect]
     Active Substance: SODIUM OXYBATE
     Indication: FIBROMYALGIA
     Dosage: 3 G, BID
     Route: 048
  8. FLUTICASONE. [Concomitant]
     Active Substance: FLUTICASONE
  9. XYREM [Suspect]
     Active Substance: SODIUM OXYBATE
     Indication: RAPID EYE MOVEMENTS SLEEP ABNORMAL
  10. OMEPRAZOLE. [Concomitant]
     Active Substance: OMEPRAZOLE
  11. CETIRIZINE [Concomitant]
     Active Substance: CETIRIZINE HYDROCHLORIDE
  12. MULTIVITAMIN [Concomitant]
     Active Substance: VITAMINS
  13. CELECOXIB. [Concomitant]
     Active Substance: CELECOXIB

REACTIONS (3)
  - Condition aggravated [Unknown]
  - Atrial fibrillation [Unknown]
  - Hypertension [Unknown]

NARRATIVE: CASE EVENT DATE: 2010
